FAERS Safety Report 5341901-X (Version None)
Quarter: 2007Q2

REPORT INFORMATION
  Report Type: 
  Country: None (occurrence: None)
  Receive Date: 20070601
  Receipt Date: 20070522
  Transmission Date: 20071010
  Serious: Yes (Other)
  Sender: FDA-Public Use
  Company Number: BE-ELI_LILLY_AND_COMPANY-BE200702000271

PATIENT
  Age: 85 Year
  Sex: Female

DRUGS (1)
  1. FORTEO [Suspect]
     Indication: OSTEOPOROSIS
     Dosage: 20 UG, DAILY (1/D)
     Route: 058
     Dates: start: 20070105, end: 20070101

REACTIONS (5)
  - BACK PAIN [None]
  - CONFUSIONAL STATE [None]
  - HEADACHE [None]
  - PAIN IN EXTREMITY [None]
  - VERTIGO [None]
